FAERS Safety Report 5863111-X (Version None)
Quarter: 2008Q3

REPORT INFORMATION
  Report Type: 
  Country: None (occurrence: None)
  Receive Date: 20080818
  Receipt Date: 20080502
  Transmission Date: 20090109
  Serious: No
  Sender: FDA-Public Use
  Company Number: WAES 0805USA00510

PATIENT
  Age: 66 Year
  Sex: Female
  Weight: 71.6683 kg

DRUGS (14)
  1. JANUVIA [Suspect]
     Indication: TYPE 2 DIABETES MELLITUS
     Dosage: 100 MG/DAILY/PO
     Route: 048
     Dates: start: 20080407
  2. ALDACTONE [Concomitant]
  3. CATAPRES [Concomitant]
  4. COUMADIN [Concomitant]
  5. LASIX [Concomitant]
  6. LEXAPRO [Concomitant]
  7. MIRAPEX [Concomitant]
  8. NORVASC [Concomitant]
  9. PEPCID [Concomitant]
  10. ZOCOR [Concomitant]
  11. ATENOLOL [Concomitant]
  12. BUMETANIDE [Concomitant]
  13. DIGOXIN [Concomitant]
  14. GLIPIZIDE [Concomitant]

REACTIONS (3)
  - CARDIOACTIVE DRUG LEVEL INCREASED [None]
  - DRUG INTERACTION [None]
  - HALLUCINATION [None]
